FAERS Safety Report 25685111 (Version 2)
Quarter: 2025Q3

REPORT INFORMATION
  Report Type: Spontaneous
  Country: JP (occurrence: JP)
  Receive Date: 20250815
  Receipt Date: 20250821
  Transmission Date: 20251021
  Serious: Yes (Hospitalization)
  Sender: AKEBIA THERAPEUTICS
  Company Number: JP-JT-EVA202503415AKEBIAP

PATIENT
  Age: 75 Year
  Sex: Female

DRUGS (1)
  1. FERRIC CITRATE ANHYDROUS [Suspect]
     Active Substance: FERRIC CITRATE ANHYDROUS
     Indication: Anaemia
     Route: 048

REACTIONS (1)
  - Hospitalisation [Unknown]
